FAERS Safety Report 13347120 (Version 1)
Quarter: 2017Q1

REPORT INFORMATION
  Report Type: Report from Study
  Country: US (occurrence: US)
  Receive Date: 20170317
  Receipt Date: 20170317
  Transmission Date: 20170428
  Serious: No
  Sender: FDA-Public Use
  Company Number: PHEH2017US007975

PATIENT
  Sex: Female

DRUGS (1)
  1. TOBI [Suspect]
     Active Substance: TOBRAMYCIN
     Indication: CYSTIC FIBROSIS LUNG
     Dosage: 300 MG (300MG/5ML), BID
     Route: 055

REACTIONS (1)
  - Drug intolerance [Unknown]
